FAERS Safety Report 24071501 (Version 1)
Quarter: 2024Q3

REPORT INFORMATION
  Report Type: Report from Study
  Country: DE (occurrence: DE)
  Receive Date: 20240710
  Receipt Date: 20240710
  Transmission Date: 20241016
  Serious: No
  Sender: ROCHE
  Company Number: DE-ROCHE-3267291

PATIENT
  Age: 30 Year
  Sex: Male
  Weight: 40.0 kg

DRUGS (5)
  1. EVRYSDI [Suspect]
     Active Substance: RISDIPLAM
     Indication: Spinal muscular atrophy
     Dosage: ON 07/OCT/2022, 06/JUL/2023, 28/MAR/2024 HE RECEIVED LAST DOSE OF RISDIPLAM.
     Route: 048
     Dates: start: 20210528
  2. ZOPICLONE [Concomitant]
     Active Substance: ZOPICLONE
     Dates: start: 202008
  3. ALBUTEROL [Concomitant]
     Active Substance: ALBUTEROL
     Dates: start: 202007
  4. GENTAMICIN [Concomitant]
     Active Substance: GENTAMICIN
  5. TILIDINE [Concomitant]
     Active Substance: TILIDINE

REACTIONS (7)
  - Nasopharyngitis [Recovered/Resolved]
  - Constipation [Recovered/Resolved]
  - Neck pain [Not Recovered/Not Resolved]
  - Headache [Recovered/Resolved]
  - Pyrexia [Recovered/Resolved]
  - Arthralgia [Recovered/Resolved]
  - Acute sinusitis [Recovered/Resolved]

NARRATIVE: CASE EVENT DATE: 20211201
